FAERS Safety Report 25387648 (Version 1)
Quarter: 2025Q2

REPORT INFORMATION
  Report Type: Spontaneous
  Country: US (occurrence: US)
  Receive Date: 20250603
  Receipt Date: 20250603
  Transmission Date: 20250717
  Serious: No
  Sender: AUROBINDO
  Company Number: US-AUROBINDO-AUR-APL-2024-059981

PATIENT

DRUGS (1)
  1. AMPHETAMINE SULFATE [Suspect]
     Active Substance: AMPHETAMINE SULFATE
     Indication: Attention deficit hyperactivity disorder
     Route: 065

REACTIONS (1)
  - Drug ineffective [Unknown]
